FAERS Safety Report 17211308 (Version 3)
Quarter: 2020Q1

REPORT INFORMATION
  Report Type: Spontaneous
  Country: US (occurrence: US)
  Receive Date: 20191228
  Receipt Date: 20200129
  Transmission Date: 20200409
  Serious: Yes (Death, Other)
  Sender: FDA-Public Use
  Company Number: US-ABBVIE-19K-163-3208311-00

PATIENT
  Age: 92 Year
  Sex: Female
  Weight: 57.2 kg

DRUGS (1)
  1. IMBRUVICA [Suspect]
     Active Substance: IBRUTINIB
     Indication: PRODUCT USED FOR UNKNOWN INDICATION
     Route: 048
     Dates: end: 20191127

REACTIONS (2)
  - Fall [Fatal]
  - Cervical vertebral fracture [Fatal]

NARRATIVE: CASE EVENT DATE: 20191127
